FAERS Safety Report 5092825-7 (Version None)
Quarter: 2006Q3

REPORT INFORMATION
  Report Type: 
  Country: None (occurrence: None)
  Receive Date: 20060824
  Receipt Date: 20060811
  Transmission Date: 20061208
  Serious: Yes (Death)
  Sender: FDA-Public Use
  Company Number: THYM-11027

PATIENT
  Age: 4 Year
  Sex: Male
  Weight: 17.5 kg

DRUGS (5)
  1. THYMOGLOBULIN [Suspect]
     Indication: APLASTIC ANAEMIA
     Dosage: 50 MG QD IV
     Route: 042
     Dates: start: 20060728, end: 20060729
  2. THYMOGLOBULIN [Suspect]
     Indication: APLASTIC ANAEMIA
     Dosage: 125 MG QD IV
     Route: 042
     Dates: start: 20060731, end: 20060731
  3. ATG-FRESENIUS (RABBIT ANTI-T-LYMPHOCYTE GLOBULIN) [Suspect]
     Indication: APLASTIC ANAEMIA
     Dosage: 50 MG QD IV
     Route: 042
     Dates: start: 20060730, end: 20060730
  4. METHYLPREDNISOLONE [Concomitant]
  5. CYCLOSPORINE [Concomitant]

REACTIONS (19)
  - ABDOMINAL PAIN [None]
  - ALANINE AMINOTRANSFERASE INCREASED [None]
  - ASPARTATE AMINOTRANSFERASE INCREASED [None]
  - BLOOD LACTATE DEHYDROGENASE INCREASED [None]
  - CARDIAC DISORDER [None]
  - CARDIAC FAILURE [None]
  - CARDIOMEGALY [None]
  - CYTOMEGALOVIRUS INFECTION [None]
  - ERYTHEMA [None]
  - HEPATIC ENZYME INCREASED [None]
  - HEPATOMEGALY [None]
  - OVERDOSE [None]
  - OXYGEN SATURATION DECREASED [None]
  - PRURITUS [None]
  - PYREXIA [None]
  - RESPIRATORY DISORDER [None]
  - RESPIRATORY RATE INCREASED [None]
  - VENTRICULAR TACHYCARDIA [None]
  - VOMITING [None]
